FAERS Safety Report 18599110 (Version 1)
Quarter: 2020Q4

REPORT INFORMATION
  Report Type: Other
  Country: TR (occurrence: TR)
  Receive Date: 20201210
  Receipt Date: 20201210
  Transmission Date: 20210114
  Serious: Yes (Hospitalization)
  Sender: FDA-Public Use
  Company Number: TR-ORCHID HEALTHCARE-2101809

PATIENT
  Age: 15 Year
  Sex: Male

DRUGS (2)
  1. DIVALPROEX SODIUM. [Suspect]
     Active Substance: DIVALPROEX SODIUM
     Indication: EPILEPSY
     Route: 065
  2. RISPERIDONE. [Suspect]
     Active Substance: RISPERIDONE
     Route: 065

REACTIONS (6)
  - Dysplasia [Recovering/Resolving]
  - Megakaryocytes [Recovering/Resolving]
  - Pancytopenia [Recovering/Resolving]
  - Anticonvulsant drug level above therapeutic [Recovering/Resolving]
  - Gingival hypertrophy [Unknown]
  - Anaemia megaloblastic [Recovering/Resolving]
